FAERS Safety Report 5773841-6 (Version None)
Quarter: 2008Q2

REPORT INFORMATION
  Report Type: 
  Country: None (occurrence: None)
  Receive Date: 20080616
  Receipt Date: 20080602
  Transmission Date: 20081010
  Serious: Yes (Hospitalization)
  Sender: FDA-Public Use
  Company Number: CA-ROCHE-559525

PATIENT
  Age: 63 Year
  Sex: Male

DRUGS (9)
  1. NAPROXEN [Suspect]
     Indication: DRUG USE FOR UNKNOWN INDICATION
     Route: 065
  2. COCAINE [Suspect]
     Indication: DRUG USE FOR UNKNOWN INDICATION
     Route: 065
  3. TENOFOVIR DISOPROXIL FUMARATE [Suspect]
     Indication: HIV INFECTION
     Route: 065
  4. LAMIVUDINE [Concomitant]
  5. LOPINAVIR [Concomitant]
  6. RITONAVIR [Concomitant]
  7. OLANZAPINE [Concomitant]
  8. PAROXETINE HCL [Concomitant]
  9. BUPROPION HCL [Concomitant]

REACTIONS (3)
  - DRUG TOXICITY [None]
  - RENAL FAILURE ACUTE [None]
  - RHABDOMYOLYSIS [None]
